FAERS Safety Report 8917579 (Version 1)
Quarter: 2012Q4

REPORT INFORMATION
  Report Type: 
  Country: US (occurrence: US)
  Receive Date: 20121119
  Receipt Date: 20121119
  Transmission Date: 20130627
  Serious: No
  Sender: FDA-Public Use
  Company Number: US-009507513-1211USA004434

PATIENT
  Age: 30 Year
  Sex: Male

DRUGS (3)
  1. SAPHRIS [Suspect]
     Indication: SCHIZOPHRENIA
     Dosage: 5 mg, bid
     Route: 048
  2. SAPHRIS [Suspect]
     Dosage: 5 mg, qd AM
     Route: 048
  3. SAPHRIS [Suspect]
     Dosage: 5 mg, qd PM
     Route: 060

REACTIONS (1)
  - Agitation [Unknown]
